FAERS Safety Report 6121226-5 (Version None)
Quarter: 2009Q1

REPORT INFORMATION
  Report Type: 
  Country: None (occurrence: None)
  Receive Date: 20090312
  Receipt Date: 20090312
  Transmission Date: 20090719
  Serious: Yes (Life-Threatening)
  Sender: FDA-Public Use
  Company Number: None

PATIENT
  Age: 22 Year
  Sex: Female
  Weight: 56.6996 kg

DRUGS (1)
  1. ZOLPIDEM [Suspect]
     Indication: INSOMNIA
     Dosage: 20 MG HS PRN PO
     Route: 048
     Dates: start: 20090128, end: 20090302

REACTIONS (12)
  - ABNORMAL DREAMS [None]
  - AMNESIA [None]
  - ANKLE FRACTURE [None]
  - FALL [None]
  - HALLUCINATION [None]
  - INCORRECT DRUG ADMINISTRATION DURATION [None]
  - INSOMNIA [None]
  - LUMBAR VERTEBRAL FRACTURE [None]
  - SCREAMING [None]
  - SOMNAMBULISM [None]
  - UPPER LIMB FRACTURE [None]
  - WRIST FRACTURE [None]
